FAERS Safety Report 9768890 (Version 1)
Quarter: 2013Q4

REPORT INFORMATION
  Report Type: Other
  Country: GB (occurrence: GB)
  Receive Date: 20131218
  Receipt Date: 20131218
  Transmission Date: 20140711
  Serious: Yes (Disabling)
  Sender: FDA-Public Use
  Company Number: GB-LUPIN PHARMACEUTICALS INC.-E2B_00001519

PATIENT
  Age: 24 Year
  Sex: Male
  Weight: 74 kg

DRUGS (6)
  1. QUETIAPINE [Suspect]
     Indication: MENTAL DISORDER
     Route: 048
     Dates: start: 20110901
  2. QUETIAPINE [Suspect]
     Route: 048
  3. QUETIAPINE [Suspect]
     Route: 048
  4. QUETIAPINE [Suspect]
     Route: 048
  5. QUETIAPINE [Suspect]
     Route: 048
  6. QUETIAPINE [Suspect]
     Route: 048
     Dates: end: 20131001

REACTIONS (1)
  - Brain injury [Not Recovered/Not Resolved]
